FAERS Safety Report 5697420-4 (Version None)
Quarter: 2008Q2

REPORT INFORMATION
  Report Type: 
  Country: None (occurrence: None)
  Receive Date: 20080407
  Receipt Date: 20080401
  Transmission Date: 20081010
  Serious: Yes (Other)
  Sender: FDA-Public Use
  Company Number: PHHY2008AU02478

PATIENT
  Sex: Male

DRUGS (1)
  1. EXELON [Suspect]
     Indication: DEMENTIA
     Dosage: 4.5 MG, BID
     Route: 048
     Dates: start: 20051001

REACTIONS (9)
  - DEMENTIA [None]
  - DISEASE PROGRESSION [None]
  - DIVERTICULUM [None]
  - GASTRIC HAEMORRHAGE [None]
  - GASTRIC POLYPS [None]
  - HYPERHIDROSIS [None]
  - MALAISE [None]
  - OSTEOPOROSIS [None]
  - WEIGHT INCREASED [None]
